FAERS Safety Report 6945578-9 (Version None)
Quarter: 2010Q3

REPORT INFORMATION
  Report Type: 
  Country: None (occurrence: None)
  Receive Date: 20100827
  Receipt Date: 20100816
  Transmission Date: 20110219
  Serious: Yes (Hospitalization, Other)
  Sender: FDA-Public Use
  Company Number: US-SANOFI-AVENTIS-2010SA035183

PATIENT
  Age: 61 Year
  Sex: Male
  Weight: 101 kg

DRUGS (22)
  1. PLAVIX [Suspect]
     Route: 048
     Dates: start: 20100607, end: 20100607
  2. PLAVIX [Suspect]
     Route: 048
     Dates: start: 20100607, end: 20100607
  3. PLAVIX [Suspect]
     Route: 048
     Dates: start: 20100611
  4. PLAVIX [Suspect]
     Route: 048
     Dates: start: 20100611
  5. PLAVIX [Suspect]
     Route: 048
     Dates: start: 20100608, end: 20100610
  6. PLAVIX [Suspect]
     Route: 048
     Dates: start: 20100608, end: 20100610
  7. REOPRO [Suspect]
     Route: 051
     Dates: start: 20100607
  8. HEPARIN [Suspect]
     Dosage: WEIGHT BASED PROTOCOL
     Route: 051
     Dates: start: 20100607, end: 20100608
  9. ASPIRIN [Suspect]
     Indication: ANTIPLATELET THERAPY
     Route: 048
     Dates: start: 20100607
  10. ASPIRIN [Suspect]
     Indication: MYOCARDIAL INFARCTION
     Route: 048
     Dates: start: 20100607
  11. ZOCOR [Suspect]
     Indication: CORONARY ARTERY DISEASE
     Route: 048
     Dates: start: 20100607, end: 20100607
  12. LISINOPRIL [Concomitant]
     Indication: CORONARY ARTERY DISEASE
     Route: 048
     Dates: start: 20100612
  13. LISINOPRIL [Concomitant]
     Indication: HYPERTENSION
     Route: 048
     Dates: start: 20100612
  14. LISINOPRIL [Concomitant]
     Indication: DIABETES MELLITUS
     Route: 048
     Dates: start: 20100612
  15. METOPROLOL [Concomitant]
     Indication: CORONARY ARTERY DISEASE
     Route: 048
     Dates: start: 20100607
  16. INSULIN [Concomitant]
     Dosage: SLIDING SCALE
     Dates: start: 20100607, end: 20100618
  17. GLIPIZIDE [Concomitant]
     Route: 048
     Dates: start: 20100611, end: 20100612
  18. ATIVAN [Concomitant]
     Indication: ANXIETY
     Route: 048
     Dates: start: 20100607, end: 20100610
  19. ZOFRAN [Concomitant]
     Indication: NAUSEA
     Route: 051
     Dates: start: 20100607, end: 20100608
  20. VICODIN [Concomitant]
     Indication: PAIN
     Dosage: 5/500MG
     Dates: start: 20100607, end: 20100615
  21. ACETAMINOPHEN [Concomitant]
     Indication: PAIN
     Route: 048
     Dates: start: 20100607, end: 20100610
  22. PEPCID [Concomitant]
     Indication: PROPHYLAXIS AGAINST GASTROINTESTINAL ULCER
     Route: 048
     Dates: start: 20100607, end: 20100613

REACTIONS (8)
  - CARDIAC ARREST [None]
  - HEPARIN-INDUCED THROMBOCYTOPENIA [None]
  - HEPATIC ENZYME INCREASED [None]
  - OVERDOSE [None]
  - PLATELET COUNT DECREASED [None]
  - PLATELET DISORDER [None]
  - TORSADE DE POINTES [None]
  - VENTRICULAR ARRHYTHMIA [None]
